FAERS Safety Report 12986994 (Version 1)
Quarter: 2016Q4

REPORT INFORMATION
  Report Type: Spontaneous
  Country: FR (occurrence: FR)
  Receive Date: 20161130
  Receipt Date: 20161130
  Transmission Date: 20170207
  Serious: Yes (Other)
  Sender: FDA-Public Use
  Company Number: FR-TEVA-713882ROM

PATIENT
  Sex: Female

DRUGS (1)
  1. COPAXONE [Suspect]
     Active Substance: GLATIRAMER ACETATE
     Route: 058
     Dates: start: 201103

REACTIONS (13)
  - Injection site pain [Not Recovered/Not Resolved]
  - Immediate post-injection reaction [Recovered/Resolved]
  - Back pain [Unknown]
  - Apparent death [Recovered/Resolved]
  - Injection site mass [Not Recovered/Not Resolved]
  - Malaise [Recovered/Resolved]
  - Injection site pain [Not Recovered/Not Resolved]
  - Muscle contracture [Not Recovered/Not Resolved]
  - Asphyxia [Recovered/Resolved]
  - Injection site pruritus [Not Recovered/Not Resolved]
  - Hot flush [Recovered/Resolved]
  - Palpitations [Recovered/Resolved]
  - Erythema [Recovered/Resolved]

NARRATIVE: CASE EVENT DATE: 2016
